FAERS Safety Report 26208533 (Version 1)
Quarter: 2025Q4

REPORT INFORMATION
  Report Type: Spontaneous
  Country: US (occurrence: US)
  Receive Date: 20251229
  Receipt Date: 20251229
  Transmission Date: 20260117
  Serious: No
  Sender: GALPHARM INTERNATIONAL
  Company Number: US-PERRIGO-25US001559

PATIENT
  Age: 2 Year
  Sex: Male
  Weight: 19.048 kg

DRUGS (2)
  1. TIOCONAZOLE [Suspect]
     Active Substance: TIOCONAZOLE
     Indication: Exposure via breast milk
     Dosage: UNKNOWN, UNKNOWN
     Route: 048
     Dates: start: 20240601, end: 20240602
  2. KIDS MULTI GUMMIES [Concomitant]
     Indication: Supplementation therapy
     Dosage: UNK
     Route: 065

REACTIONS (1)
  - Exposure via breast milk [Unknown]

NARRATIVE: CASE EVENT DATE: 20240601
